FAERS Safety Report 4661488-4 (Version None)
Quarter: 2005Q2

REPORT INFORMATION
  Report Type: 
  Country: None (occurrence: None)
  Receive Date: 20050512
  Receipt Date: 20050512
  Transmission Date: 20051028
  Serious: Yes (Life-Threatening)
  Sender: FDA-Public Use
  Company Number: None

PATIENT
  Age: 66 Year
  Sex: Female
  Weight: 117.9352 kg

DRUGS (12)
  1. CIPRO [Suspect]
     Indication: WHITE BLOOD CELL COUNT INCREASED
     Dosage: 400MG   Q 12 HOURS  INTRAVENOU
     Route: 042
     Dates: start: 20050120, end: 20050121
  2. METOPROLOL [Concomitant]
  3. ALTACE [Concomitant]
  4. PREVACID [Concomitant]
  5. PREDNISONE [Concomitant]
  6. INSULIN - HUMAN R [Concomitant]
  7. LEVOTHYROXINE SODIUM [Concomitant]
  8. ZOSYN [Concomitant]
  9. POTASSIUM CHLORIDE [Concomitant]
  10. LOVENOX [Concomitant]
  11. ASPIRIN [Concomitant]
  12. LASIX [Concomitant]

REACTIONS (4)
  - BRADYCARDIA [None]
  - CARDIO-RESPIRATORY ARREST [None]
  - TORSADE DE POINTES [None]
  - VENTRICULAR TACHYCARDIA [None]
